FAERS Safety Report 23645097 (Version 5)
Quarter: 2024Q2

REPORT INFORMATION
  Report Type: Spontaneous
  Country: DE (occurrence: DE)
  Receive Date: 20240318
  Receipt Date: 20240620
  Transmission Date: 20240716
  Serious: Yes (Hospitalization, Other)
  Sender: FDA-Public Use
  Company Number: DE-SAMSUNG BIOEPIS-SB-2023-34297

PATIENT
  Age: 67 Year
  Sex: Female
  Weight: 45 kg

DRUGS (20)
  1. OXALIPLATIN [Suspect]
     Active Substance: OXALIPLATIN
     Indication: Oesophageal adenocarcinoma
     Dosage: 117 MG
     Route: 042
     Dates: start: 20231208, end: 20231208
  2. OXALIPLATIN [Suspect]
     Active Substance: OXALIPLATIN
     Dosage: 85MG/M2; IV, D1/D15/D29 AND D43 PRE AND POST OP
     Route: 042
     Dates: start: 20231208, end: 20240524
  3. OXALIPLATIN [Suspect]
     Active Substance: OXALIPLATIN
     Dosage: 89 MG?ROUTE: INTRAVENOUS
     Dates: end: 20240110
  4. LEUCOVORIN [Suspect]
     Active Substance: LEUCOVORIN\LEUCOVORIN CALCIUM
     Indication: Oesophageal adenocarcinoma
     Dosage: 280 MG?ROA: INTRAVENOUS
  5. LEUCOVORIN [Suspect]
     Active Substance: LEUCOVORIN\LEUCOVORIN CALCIUM
     Indication: Oesophageal adenocarcinoma
     Dosage: 276 MG, 280 MG
     Route: 042
     Dates: start: 20231208, end: 20231208
  6. LEUCOVORIN [Suspect]
     Active Substance: LEUCOVORIN\LEUCOVORIN CALCIUM
     Dosage: 200MG/M2, IV, D1/D51/D29 AND D43 PRE AND POST OP
     Route: 042
     Dates: start: 20231208, end: 20240524
  7. FLUOROURACIL [Suspect]
     Active Substance: FLUOROURACIL
     Indication: Oesophageal adenocarcinoma
     Dosage: 2730 MG?ROUTE: INTRAVENOUS
     Dates: end: 20240110
  8. FLUOROURACIL [Suspect]
     Active Substance: FLUOROURACIL
     Dosage: 3588 MG
     Route: 042
     Dates: start: 20231208, end: 20231208
  9. FLUOROURACIL [Suspect]
     Active Substance: FLUOROURACIL
     Dosage: 2600MG/M2, IV,D1/D15/D29 AND D43 PRE AND POST OP
     Route: 042
     Dates: start: 20231208, end: 20240524
  10. DOCETAXEL [Suspect]
     Active Substance: DOCETAXEL\DOCETAXEL ANHYDROUS
     Indication: Oesophageal adenocarcinoma
     Dosage: 50MG/M2, IV, D1/D15/D29 AND D43 PRE AN POST OP
     Route: 042
     Dates: start: 20231208, end: 20240524
  11. DOCETAXEL [Suspect]
     Active Substance: DOCETAXEL\DOCETAXEL ANHYDROUS
     Dosage: 69 MG
     Route: 042
     Dates: start: 20231208, end: 20231208
  12. DOCETAXEL [Suspect]
     Active Substance: DOCETAXEL\DOCETAXEL ANHYDROUS
     Dosage: 53 MG?ROUTE: INTRAVENOUS
     Dates: start: 20240110, end: 20240110
  13. PEMBROLIZUMAB [Suspect]
     Active Substance: PEMBROLIZUMAB
     Indication: Oesophageal adenocarcinoma
     Dosage: FLAT DOSE, D1/D22/D43 PRE AND POST OP, AFTERWARDS D1 Q3W
     Route: 042
     Dates: start: 20231208, end: 20240524
  14. PEMBROLIZUMAB [Suspect]
     Active Substance: PEMBROLIZUMAB
     Dosage: FLAT DOSE
     Route: 042
     Dates: start: 20231208, end: 20231208
  15. ONTRUZANT [Suspect]
     Active Substance: TRASTUZUMAB-DTTB
     Indication: Oesophageal adenocarcinoma
     Dosage: 8 MG/KG (D1 344 MG)?ROUTE: INTRAVENOUS
     Dates: start: 20231208, end: 20231208
  16. ONTRUZANT [Suspect]
     Active Substance: TRASTUZUMAB-DTTB
     Dosage: D1; 8MG/KG, IV, 6MG/KG IV D22/D43 PRE AND POST OP, AFTERWARDS 6MG/KG IV D1 Q3W ?FORM: UNKNOWN
     Route: 042
     Dates: start: 20240524
  17. AMLODIPINE [Concomitant]
     Active Substance: AMLODIPINE BESYLATE
     Indication: Product used for unknown indication
     Dosage: 1-0-0
  18. HYDROCHLOROTHIAZIDE [Concomitant]
     Active Substance: HYDROCHLOROTHIAZIDE
     Indication: Product used for unknown indication
     Dosage: 1-0-0
  19. RAMIPRIL [Concomitant]
     Active Substance: RAMIPRIL
     Indication: Product used for unknown indication
     Dosage: 1-0-0
  20. ASPIRIN [Concomitant]
     Active Substance: ASPIRIN
     Indication: Product used for unknown indication
     Dosage: 1-0-0

REACTIONS (10)
  - Diarrhoea [Recovered/Resolved]
  - Pyrexia [Recovered/Resolved]
  - Chills [Recovered/Resolved]
  - Prerenal failure [Unknown]
  - Toxicity to various agents [Unknown]
  - Immune-mediated adverse reaction [Unknown]
  - COVID-19 [Recovered/Resolved]
  - Exposure to SARS-CoV-2 [Unknown]
  - Product use in unapproved indication [Unknown]
  - Inflammatory marker increased [Unknown]

NARRATIVE: CASE EVENT DATE: 20231218
